FAERS Safety Report 4780711-9 (Version None)
Quarter: 2005Q3

REPORT INFORMATION
  Report Type: 
  Country: None (occurrence: None)
  Receive Date: 20050927
  Receipt Date: 20050919
  Transmission Date: 20060218
  Serious: Yes (Other)
  Sender: FDA-Public Use
  Company Number: US-MERCK-0509USA02712

PATIENT
  Sex: Female

DRUGS (3)
  1. VIOXX [Suspect]
     Route: 048
     Dates: end: 20040101
  2. CELEBREX [Suspect]
     Route: 065
     Dates: end: 20030101
  3. BEXTRA [Suspect]
     Route: 065
     Dates: end: 20040101

REACTIONS (1)
  - MYOCARDIAL INFARCTION [None]
